FAERS Safety Report 10034555 (Version 1)
Quarter: 2014Q1

REPORT INFORMATION
  Report Type: Spontaneous
  Country: US (occurrence: None)
  Receive Date: 20140306
  Receipt Date: 20140306
  Transmission Date: 20141002
  Serious: Yes (Disabling)
  Sender: FDA-Public Use
  Company Number: 163-21880-13021821

PATIENT
  Age: 66 Year
  Sex: Female

DRUGS (9)
  1. REVLIMID [Suspect]
     Indication: PLASMA CELL MYELOMA
     Dosage: 10 MG, 1 IN 1 D, PO
     Route: 048
     Dates: start: 20100629
  2. ASPIRIN (ACETYLSALICYLIC ACID) [Concomitant]
  3. CALCIUM 600 + D (LEKOVIT CA) [Concomitant]
  4. GABAPENTIN (GABAPENTIN) [Concomitant]
  5. MAGNESIUM (MAGNESIUM) [Concomitant]
  6. OXYCODONE (OXYCODONE) [Concomitant]
  7. PREMARIN (ESTROGENS CONJUGATED) [Concomitant]
  8. PROVERA [Concomitant]
  9. PRILOSEC (OMEPRAZOLE) [Concomitant]

REACTIONS (2)
  - Rash maculo-papular [None]
  - Fatigue [None]
